FAERS Safety Report 8064659-2 (Version None)
Quarter: 2012Q1

REPORT INFORMATION
  Report Type: 
  Country: None (occurrence: None)
  Receive Date: 20120123
  Receipt Date: 20120109
  Transmission Date: 20120608
  Serious: Yes (Other)
  Sender: FDA-Public Use
  Company Number: US-ALLERGAN-1200333US

PATIENT
  Age: 63 Year
  Sex: Female
  Weight: 52.154 kg

DRUGS (1)
  1. LUMIGAN [Suspect]
     Indication: INTRAOCULAR PRESSURE TEST
     Dosage: 2 GTT, QHS
     Route: 047
     Dates: start: 20110101, end: 20111119

REACTIONS (8)
  - HEADACHE [None]
  - BLOOD PRESSURE INCREASED [None]
  - DRY EYE [None]
  - PHOTOPHOBIA [None]
  - KERATITIS [None]
  - SKIN HYPERPIGMENTATION [None]
  - HYPOAESTHESIA [None]
  - EYE PAIN [None]
